FAERS Safety Report 16218858 (Version 2)
Quarter: 2019Q2

REPORT INFORMATION
  Report Type: Spontaneous
  Country: PL (occurrence: PL)
  Receive Date: 20190419
  Receipt Date: 20190501
  Transmission Date: 20190711
  Serious: No
  Sender: FDA-Public Use
  Company Number: PL-PFIZER INC-2019163223

PATIENT
  Age: 34 Year
  Sex: Male

DRUGS (1)
  1. ATORVASTATIN CALCIUM. [Suspect]
     Active Substance: ATORVASTATIN CALCIUM
     Dosage: 40 MG ONCE DAILY (ONE TABLET IN THE EVENING)

REACTIONS (1)
  - No adverse event [Unknown]
